FAERS Safety Report 5977340-8 (Version None)
Quarter: 2008Q4

REPORT INFORMATION
  Report Type: 
  Country: None (occurrence: None)
  Receive Date: 20081203
  Receipt Date: 20081124
  Transmission Date: 20090506
  Serious: Yes (Other)
  Sender: FDA-Public Use
  Company Number: PHHY2008CL29679

PATIENT
  Age: 84 Year
  Sex: Male

DRUGS (1)
  1. TAREG D [Suspect]
     Indication: HYPERTENSION
     Dosage: 1(160MG + 12.5MG) TABLET/DAY
     Dates: start: 20050101

REACTIONS (1)
  - EYE DISORDER [None]
